FAERS Safety Report 5041004-8 (Version None)
Quarter: 2006Q3

REPORT INFORMATION
  Report Type: 
  Country: None (occurrence: None)
  Receive Date: 20060703
  Receipt Date: 20051017
  Transmission Date: 20061208
  Serious: No
  Sender: FDA-Public Use
  Company Number: US-GLAXOSMITHKLINE-A0578471A

PATIENT
  Age: 60 Year
  Sex: Female
  Weight: 65.9 kg

DRUGS (7)
  1. PARNATE [Suspect]
     Indication: DEPRESSION
     Dosage: 10MG THREE TIMES PER DAY
     Route: 048
     Dates: start: 20050901
  2. KLONOPIN [Concomitant]
  3. LORAZEPAM [Concomitant]
  4. RISPERDAL [Concomitant]
  5. ZYPREXA [Concomitant]
  6. NORTRIPTYLINE HCL [Concomitant]
  7. NARDIL [Concomitant]

REACTIONS (2)
  - ABDOMINAL DISCOMFORT [None]
  - NAUSEA [None]
